FAERS Safety Report 6592918-9 (Version None)
Quarter: 2010Q1

REPORT INFORMATION
  Report Type: 
  Country: None (occurrence: None)
  Receive Date: 20100212
  Receipt Date: 20100201
  Transmission Date: 20100710
  Serious: Yes (Death, Other)
  Sender: FDA-Public Use
  Company Number: CERZ-1001095

PATIENT
  Age: 63 Year
  Sex: Male
  Weight: 97 kg

DRUGS (7)
  1. CEREZYME [Suspect]
     Indication: GAUCHER'S DISEASE
     Dosage: 4400 U, INTRAVENOUS
     Route: 042
     Dates: start: 20000119, end: 20090601
  2. ZAVESCA [Suspect]
     Indication: GAUCHER'S DISEASE
  3. LOSARTAN (LOSARTAN) [Concomitant]
  4. BISOPROLOL WITH HCT (BISOPROLOL WITH HCT) [Concomitant]
  5. CALCIUM (CALCIUM CARBONATE) [Concomitant]
  6. ALLOPURINOL [Concomitant]
  7. ALENDRONAT (ALENDRONATE SODIUM) [Concomitant]

REACTIONS (4)
  - CARDIAC FAILURE [None]
  - HYPERTENSION [None]
  - MYOCARDIAL INFARCTION [None]
  - TRANSIENT ISCHAEMIC ATTACK [None]
